FAERS Safety Report 13983350 (Version 1)
Quarter: 2017Q3

REPORT INFORMATION
  Report Type: Spontaneous
  Country: JP (occurrence: JP)
  Receive Date: 20170918
  Receipt Date: 20170918
  Transmission Date: 20171128
  Serious: Yes (Other)
  Sender: FDA-Public Use
  Company Number: JP-PFIZER INC-2017393050

PATIENT
  Age: 40 Year
  Sex: Female

DRUGS (1)
  1. SUTENT [Suspect]
     Active Substance: SUNITINIB MALATE
     Dosage: 37.5 MG, DAILY
     Route: 048

REACTIONS (8)
  - Headache [Unknown]
  - Hair colour changes [Unknown]
  - Platelet count decreased [Unknown]
  - Palmar-plantar erythrodysaesthesia syndrome [Unknown]
  - Enteritis infectious [Unknown]
  - Nasopharyngitis [Unknown]
  - Hypothyroidism [Unknown]
  - Eyelash discolouration [Unknown]
